FAERS Safety Report 8785571 (Version 1)
Quarter: 2012Q4

REPORT INFORMATION
  Report Type: 
  Country: US (occurrence: None)
  Receive Date: 20120904
  Receipt Date: 20120904
  Transmission Date: 20130627
  Serious: Yes (Hospitalization)
  Sender: FDA-Public Use
  Company Number: 2012MA010556

PATIENT
  Age: 33 Year
  Sex: Female
  Weight: 56.7 kg

DRUGS (1)
  1. MICONAZOLE NITRATE [Suspect]
     Route: 067

REACTIONS (3)
  - Vulvovaginal pruritus [None]
  - Vulvovaginal burning sensation [None]
  - Condition aggravated [None]
